FAERS Safety Report 25724239 (Version 1)
Quarter: 2025Q3

REPORT INFORMATION
  Report Type: Spontaneous
  Country: US (occurrence: US)
  Receive Date: 20250826
  Receipt Date: 20250826
  Transmission Date: 20251021
  Serious: Yes (Life-Threatening, Hospitalization, Other)
  Sender: TEVA
  Company Number: US-TEVA-VS-3364711

PATIENT
  Age: 14 Year
  Sex: Male

DRUGS (6)
  1. IRINOTECAN [Suspect]
     Active Substance: IRINOTECAN
     Indication: Neuroblastoma
     Route: 065
  2. LORLATINIB [Interacting]
     Active Substance: LORLATINIB
     Indication: Neuroblastoma
     Route: 065
  3. LORLATINIB [Interacting]
     Active Substance: LORLATINIB
     Indication: Neuroblastoma
     Dosage: DOSE INCREASED
     Route: 065
  4. TEMOZOLOMIDE [Suspect]
     Active Substance: TEMOZOLOMIDE
     Indication: Neuroblastoma
     Route: 065
  5. NAXITAMAB [Interacting]
     Active Substance: NAXITAMAB
     Indication: Neuroblastoma
     Route: 065
  6. GRANULOCYTE-MACROPHAGE COLONY-STIMULATING FACTOR [Concomitant]
     Active Substance: GRANULOCYTE-MACROPHAGE COLONY-STIMULATING FACTOR
     Indication: Neuroblastoma
     Route: 065

REACTIONS (7)
  - Pulmonary toxicity [Recovered/Resolved]
  - Drug ineffective [Unknown]
  - Drug interaction [Unknown]
  - Hypoxia [Recovered/Resolved]
  - Respiratory failure [Recovered/Resolved]
  - Off label use [Unknown]
  - Pulmonary alveolar haemorrhage [Recovered/Resolved]
